FAERS Safety Report 9241156 (Version 1)
Quarter: 2013Q2

REPORT INFORMATION
  Report Type: Spontaneous
  Country: FR (occurrence: FR)
  Receive Date: 20130419
  Receipt Date: 20130419
  Transmission Date: 20140414
  Serious: Yes (Hospitalization)
  Sender: FDA-Public Use
  Company Number: FR-BRISTOL-MYERS SQUIBB COMPANY-18781955

PATIENT
  Age: 53 Year
  Sex: Male

DRUGS (2)
  1. ORENCIA FOR INJ 250 MG/VIAL [Suspect]
     Indication: RHEUMATOID ARTHRITIS
     Dosage: COURSES:24?LAST DOSE IN DEC2012
     Route: 042
     Dates: start: 2010
  2. METHOTREXATE [Suspect]
     Indication: RHEUMATOID ARTHRITIS
     Dates: end: 201212

REACTIONS (2)
  - Pain [Recovering/Resolving]
  - Retroperitoneal abscess [Recovering/Resolving]
